FAERS Safety Report 5817583-7 (Version None)
Quarter: 2008Q3

REPORT INFORMATION
  Report Type: 
  Country: None (occurrence: None)
  Receive Date: 20080716
  Receipt Date: 20080102
  Transmission Date: 20090109
  Serious: Yes (Death)
  Sender: FDA-Public Use
  Company Number: 1000000006

PATIENT
  Age: 69 Year
  Sex: Female
  Weight: 64.8 kg

DRUGS (7)
  1. CITALOPRAM HYDROBROMIDE [Suspect]
     Indication: MAJOR DEPRESSION
     Dosage: (40 MG), ORAL
     Route: 048
     Dates: start: 20060601
  2. AMISULPRIDE [Concomitant]
  3. BENDROFLUMETHIAZIDE [Concomitant]
  4. BISOPROLOL FUMARATE [Concomitant]
  5. LISINOPRIL [Concomitant]
  6. PRIADEL [Concomitant]
  7. SIMVASTATIN [Concomitant]

REACTIONS (8)
  - BENIGN NEOPLASM OF THYROID GLAND [None]
  - DRUG LEVEL ABOVE THERAPEUTIC [None]
  - DRUG LEVEL BELOW THERAPEUTIC [None]
  - DRUG TOXICITY [None]
  - EXCORIATION [None]
  - GASTROINTESTINAL DISORDER [None]
  - HYPERTENSIVE HEART DISEASE [None]
  - SPINAL OSTEOARTHRITIS [None]
